FAERS Safety Report 25376535 (Version 4)
Quarter: 2025Q3

REPORT INFORMATION
  Report Type: Spontaneous
  Country: EU (occurrence: EU)
  Receive Date: 20250530
  Receipt Date: 20250911
  Transmission Date: 20251020
  Serious: Yes (Hospitalization)
  Sender: NOVO NORDISK
  Company Number: EU-NOVOPROD-1428058

PATIENT
  Age: 44 Year
  Sex: Female
  Weight: 90 kg

DRUGS (3)
  1. SAXENDA [Suspect]
     Active Substance: LIRAGLUTIDE
     Indication: Overweight
     Dosage: 0.60 MG, QD
     Route: 058
     Dates: end: 20250418
  2. SAXENDA [Suspect]
     Active Substance: LIRAGLUTIDE
     Indication: Hypertension
  3. TELDIPIN [Concomitant]
     Indication: Hypertension
     Dosage: 45 MG, QD

REACTIONS (4)
  - Hypoglycaemia [Recovered/Resolved]
  - Device mechanical issue [Unknown]
  - Product quality issue [Unknown]
  - Device delivery system issue [Unknown]

NARRATIVE: CASE EVENT DATE: 20250418
